FAERS Safety Report 7978706-7 (Version None)
Quarter: 2011Q4

REPORT INFORMATION
  Report Type: 
  Country: None (occurrence: None)
  Receive Date: 20111214
  Receipt Date: 20111202
  Transmission Date: 20120403
  Serious: Yes (Life-Threatening, Hospitalization)
  Sender: FDA-Public Use
  Company Number: JP-ASTELLAS-2011US008330

PATIENT
  Sex: Female
  Weight: 64 kg

DRUGS (8)
  1. LIVACT [Concomitant]
     Indication: HEPATIC CIRRHOSIS
     Dosage: 3 DF, UID/QD
     Dates: start: 20110601
  2. PORTOLAC [Concomitant]
     Indication: HEPATIC CIRRHOSIS
     Dosage: 6 G, UID/QD
     Route: 048
     Dates: start: 20100824
  3. LOXONIN [Concomitant]
     Indication: ARTHRALGIA
     Dosage: 60 MG, UID/QD
     Route: 048
     Dates: start: 20111007, end: 20111021
  4. TARCEVA [Suspect]
     Indication: LUNG ADENOCARCINOMA
     Dosage: 150 MG, UID/QD
     Route: 048
     Dates: start: 20111021, end: 20111028
  5. LASIX [Concomitant]
     Indication: HEPATIC CIRRHOSIS
     Dosage: 40 MG, UID/QD
     Route: 048
     Dates: start: 20100501
  6. MONILAC [Concomitant]
     Indication: HEPATIC CIRRHOSIS
     Dosage: 60 ML, UID/QD
     Route: 048
     Dates: start: 20100501
  7. ALDACTONE [Concomitant]
     Indication: HEPATIC CIRRHOSIS
     Dosage: 50 MG, UID/QD
     Route: 048
     Dates: start: 20100501
  8. URSO 250 [Concomitant]
     Indication: HEPATIC CIRRHOSIS
     Dosage: 600 MG, UID/QD
     Route: 048
     Dates: start: 20100501

REACTIONS (4)
  - BILIARY TRACT DISORDER [None]
  - RECTAL ULCER HAEMORRHAGE [None]
  - DIARRHOEA [None]
  - GASTRIC ULCER HAEMORRHAGE [None]
